FAERS Safety Report 9381529 (Version 2)
Quarter: 2013Q3

REPORT INFORMATION
  Report Type: Spontaneous
  Country: FR (occurrence: FR)
  Receive Date: 20130703
  Receipt Date: 20130806
  Transmission Date: 20140515
  Serious: Yes (Other)
  Sender: FDA-Public Use
  Company Number: FR-EISAI INC-E3810-06512-SPO-FR

PATIENT
  Age: 74 Year
  Sex: Male

DRUGS (8)
  1. PARIET (RABEPRAZOLE) [Suspect]
     Indication: GASTRIC ULCER
     Dosage: UNKNOWN
     Route: 048
  2. PANITUMUMAB [Suspect]
     Indication: COLON CANCER
     Route: 042
     Dates: start: 20120413
  3. PANITUMUMAB [Suspect]
     Route: 042
  4. PANITUMUMAB [Suspect]
     Route: 042
  5. LANTUS [Suspect]
     Indication: TYPE 2 DIABETES MELLITUS
     Dosage: UNKNOWN
     Route: 058
  6. HUMALOG [Suspect]
     Indication: TYPE 2 DIABETES MELLITUS
     Dosage: UNKNOWN
     Route: 058
  7. ENALAPRIL MALEATE [Suspect]
     Indication: HYPERTENSION
     Dosage: UNKNOWN
     Route: 048
  8. DIFFU K [Suspect]
     Indication: HYPOKALAEMIA
     Dosage: UNKNOWN
     Route: 048

REACTIONS (2)
  - Hypertension [Recovered/Resolved]
  - Headache [Recovered/Resolved]
